FAERS Safety Report 24277232 (Version 1)
Quarter: 2024Q3

REPORT INFORMATION
  Report Type: Spontaneous
  Country: AU (occurrence: AU)
  Receive Date: 20240903
  Receipt Date: 20240903
  Transmission Date: 20241016
  Serious: Yes (Hospitalization)
  Sender: SANDOZ
  Company Number: AU-ROCHE-10000011067

PATIENT
  Age: 41 Year
  Sex: Male

DRUGS (10)
  1. MYCOPHENOLATE MOFETIL [Suspect]
     Active Substance: MYCOPHENOLATE MOFETIL
     Indication: Prophylaxis against transplant rejection
     Dosage: UNK
     Route: 065
     Dates: start: 201911
  2. MYCOPHENOLATE MOFETIL [Suspect]
     Active Substance: MYCOPHENOLATE MOFETIL
     Indication: Immunosuppressant drug therapy
  3. METHYLPREDNISOLONE [Suspect]
     Active Substance: METHYLPREDNISOLONE
     Indication: Prophylaxis against transplant rejection
     Dosage: RECEIVED ANOTHER COURSE OF INTRAVENOUS METHYLPREDNISOLONE
     Route: 042
     Dates: start: 202301
  4. METHYLPREDNISOLONE [Suspect]
     Active Substance: METHYLPREDNISOLONE
     Indication: Immunosuppressant drug therapy
  5. PREDNISOLONE [Suspect]
     Active Substance: PREDNISOLONE
     Indication: Immunosuppressant drug therapy
     Dosage: INCREASED DOSES
     Route: 065
     Dates: start: 202302
  6. PREDNISOLONE [Suspect]
     Active Substance: PREDNISOLONE
     Indication: Prophylaxis against transplant rejection
     Dosage: WEANING DOSE
     Route: 065
     Dates: start: 201911
  7. TACROLIMUS [Suspect]
     Active Substance: TACROLIMUS
     Dosage: 3 G(THREE DOSES)
     Route: 065
     Dates: start: 202112
  8. TACROLIMUS [Suspect]
     Active Substance: TACROLIMUS
     Indication: Immunosuppressant drug therapy
     Dosage: INCREASED DOSE
     Route: 065
     Dates: start: 202302
  9. TACROLIMUS [Suspect]
     Active Substance: TACROLIMUS
     Dosage: INDUCTION THERAPY
     Route: 065
     Dates: start: 201911
  10. TACROLIMUS [Suspect]
     Active Substance: TACROLIMUS
     Indication: Prophylaxis against transplant rejection
     Dosage: UNK
     Route: 065
     Dates: start: 201911

REACTIONS (2)
  - Hepatitis E [Recovered/Resolved]
  - Microangiopathic haemolytic anaemia [Recovered/Resolved]

NARRATIVE: CASE EVENT DATE: 20200401
